FAERS Safety Report 5533182-9 (Version None)
Quarter: 2007Q4

REPORT INFORMATION
  Report Type: 
  Country: None (occurrence: None)
  Receive Date: 20071204
  Receipt Date: 20071127
  Transmission Date: 20080405
  Serious: Yes (Life-Threatening, Hospitalization)
  Sender: FDA-Public Use
  Company Number: DE-ROCHE-533937

PATIENT
  Age: 70 Year
  Sex: Male

DRUGS (1)
  1. BONIVA [Suspect]
     Indication: DRUG USE FOR UNKNOWN INDICATION
     Route: 042
     Dates: start: 20071122

REACTIONS (2)
  - ANAPHYLACTIC SHOCK [None]
  - CARDIAC ARREST [None]
